FAERS Safety Report 24611735 (Version 1)
Quarter: 2024Q4

REPORT INFORMATION
  Report Type: Report from Study
  Country: EG (occurrence: EG)
  Receive Date: 20241113
  Receipt Date: 20241113
  Transmission Date: 20250115
  Serious: No
  Sender: SANDOZ
  Company Number: EG-SANDOZ-SDZ2024EG091196

PATIENT
  Sex: Female

DRUGS (1)
  1. OMNITROPE [Suspect]
     Active Substance: SOMATROPIN
     Indication: Growth hormone deficiency
     Dosage: 0.6 MG PER DAY
     Route: 058
     Dates: start: 202305

REACTIONS (3)
  - Device difficult to use [Unknown]
  - Product substitution [Unknown]
  - Product availability issue [Unknown]
